FAERS Safety Report 21586439 (Version 1)
Quarter: 2022Q4

REPORT INFORMATION
  Report Type: Spontaneous
  Country: CO (occurrence: CO)
  Receive Date: 20221112
  Receipt Date: 20221112
  Transmission Date: 20230113
  Serious: Yes (Death)
  Sender: FDA-Public Use
  Company Number: CO-AMGEN-COLSP2022193938

PATIENT
  Age: 1 Year
  Sex: Male
  Weight: 9.2 kg

DRUGS (4)
  1. BLINCYTO [Suspect]
     Active Substance: BLINATUMOMAB
     Indication: Acute lymphocytic leukaemia
     Dosage: 1.7 MICROGRAM, EVERY 24H
     Route: 040
     Dates: start: 20220517, end: 20220521
  2. BLINCYTO [Suspect]
     Active Substance: BLINATUMOMAB
     Dosage: 5 MICROGRAM, EVERY 24H
     Route: 040
     Dates: start: 20220522, end: 20220613
  3. BLINCYTO [Suspect]
     Active Substance: BLINATUMOMAB
     Dosage: 1.9 MICROGRAM, EVERY 24H
     Route: 040
     Dates: start: 20220701, end: 20220705
  4. BLINCYTO [Suspect]
     Active Substance: BLINATUMOMAB
     Dosage: 5.7 MICROGRAM, EVERY 24H
     Route: 040
     Dates: start: 20220706, end: 20220729

REACTIONS (1)
  - Drug ineffective [Fatal]

NARRATIVE: CASE EVENT DATE: 20220101
